FAERS Safety Report 16221866 (Version 1)
Quarter: 2019Q2

REPORT INFORMATION
  Report Type: Spontaneous
  Country: FR (occurrence: FR)
  Receive Date: 20190422
  Receipt Date: 20190422
  Transmission Date: 20190711
  Serious: Yes (Hospitalization, Other)
  Sender: FDA-Public Use
  Company Number: FR-BRISTOL-MYERS SQUIBB COMPANY-BMS-2019-037892

PATIENT
  Age: 45 Year
  Sex: Male

DRUGS (2)
  1. HYDROXYUREA. [Suspect]
     Active Substance: HYDROXYUREA
     Indication: PRODUCT USED FOR UNKNOWN INDICATION
     Dosage: 500 MG/D FOR 7 DAYS (6.6 MG/KG/D) THEN AT 1000 MG/D OR 13.3 MG/KG/D
     Route: 065
     Dates: start: 20170505
  2. HYDROXYUREA. [Suspect]
     Active Substance: HYDROXYUREA
     Indication: SICKLE CELL DISEASE
     Dosage: 1000 MG AND 1500 MG/D (15-22 MG/KG/D)
     Route: 065
     Dates: start: 1993, end: 2002

REACTIONS (2)
  - Skin ulcer [Unknown]
  - Sickle cell anaemia with crisis [Unknown]
